FAERS Safety Report 12802295 (Version 1)
Quarter: 2016Q4

REPORT INFORMATION
  Report Type: Spontaneous
  Country: US (occurrence: US)
  Receive Date: 20161003
  Receipt Date: 20161003
  Transmission Date: 20170207
  Serious: No
  Sender: FDA-Public Use
  Company Number: US-JAZZ-2016-US-012403

PATIENT
  Age: 42 Year
  Sex: Female

DRUGS (40)
  1. XYREM [Suspect]
     Active Substance: SODIUM OXYBATE
     Dosage: 3.75 G, FIRST DOSE
     Route: 048
     Dates: start: 201501
  2. TRAMADOL ER [Concomitant]
     Active Substance: TRAMADOL HYDROCHLORIDE
  3. KETOROLAC [Concomitant]
     Active Substance: KETOROLAC\KETOROLAC TROMETHAMINE
  4. FOLIC ACID. [Concomitant]
     Active Substance: FOLIC ACID
  5. AMITRIPTYLINE HCL [Concomitant]
     Active Substance: AMITRIPTYLINE
  6. ALLEGRA ALLERGY [Concomitant]
     Active Substance: FEXOFENADINE HYDROCHLORIDE
  7. ALPRAZOLAM XR [Concomitant]
     Active Substance: ALPRAZOLAM
  8. OXYBUTYNIN CHLORIDE ER [Concomitant]
     Active Substance: OXYBUTYNIN CHLORIDE
  9. MODAFINIL. [Concomitant]
     Active Substance: MODAFINIL
  10. NITROFURANTOIN. [Concomitant]
     Active Substance: NITROFURANTOIN
  11. BUPROPION HYDROCHLORIDE SR [Concomitant]
     Active Substance: BUPROPION HYDROCHLORIDE
  12. METHYLPHENIDATE ER [Concomitant]
     Active Substance: METHYLPHENIDATE
  13. MIGRANAL [Concomitant]
     Active Substance: DIHYDROERGOTAMINE MESYLATE
  14. CIPRO [Concomitant]
     Active Substance: CIPROFLOXACIN HYDROCHLORIDE
  15. BUPROPION HYDROCHLORIDE XL [Concomitant]
     Active Substance: BUPROPION HYDROCHLORIDE
  16. PHENAZOPYRIDINE. [Concomitant]
     Active Substance: PHENAZOPYRIDINE
  17. PYRIDIUM [Concomitant]
     Active Substance: PHENAZOPYRIDINE
  18. VITAMIN D [Concomitant]
     Active Substance: CHOLECALCIFEROL
  19. LACTAID [Concomitant]
     Active Substance: LACTASE
  20. XYREM [Suspect]
     Active Substance: SODIUM OXYBATE
     Dosage: DOSE ADJUSTMENTS
     Route: 048
     Dates: start: 201302, end: 201501
  21. XYREM [Suspect]
     Active Substance: SODIUM OXYBATE
     Dosage: 4.5 G, SECOND DOSE
     Route: 048
     Dates: start: 201501
  22. ALPRAZOLAM ER [Concomitant]
     Active Substance: ALPRAZOLAM
  23. DICLOFENAC POTASSIUM. [Concomitant]
     Active Substance: DICLOFENAC POTASSIUM
  24. PRAMIPEXOLE. [Concomitant]
     Active Substance: PRAMIPEXOLE
  25. ABILIFY [Concomitant]
     Active Substance: ARIPIPRAZOLE
  26. XYREM [Suspect]
     Active Substance: SODIUM OXYBATE
     Indication: NARCOLEPSY
     Dosage: 1.5 G, BID
     Route: 048
     Dates: start: 201302, end: 201302
  27. BACTRIM DS [Concomitant]
     Active Substance: SULFAMETHOXAZOLE\TRIMETHOPRIM
  28. MAGNESIUM [Concomitant]
     Active Substance: MAGNESIUM
  29. ROZEREM [Concomitant]
     Active Substance: RAMELTEON
  30. IBUPROFEN. [Concomitant]
     Active Substance: IBUPROFEN
  31. LAMICTAL [Concomitant]
     Active Substance: LAMOTRIGINE
  32. CETIRIZINE HCL [Concomitant]
     Active Substance: CETIRIZINE HYDROCHLORIDE
  33. INVEGA [Concomitant]
     Active Substance: PALIPERIDONE
  34. ZYRTEC [Concomitant]
     Active Substance: CETIRIZINE HYDROCHLORIDE
  35. ONDANSETRON HCL [Concomitant]
     Active Substance: ONDANSETRON HYDROCHLORIDE
  36. PROVIGIL [Concomitant]
     Active Substance: MODAFINIL
  37. ALPRAZOLAM. [Concomitant]
     Active Substance: ALPRAZOLAM
  38. QUETIAPINE FUMARATE. [Concomitant]
     Active Substance: QUETIAPINE FUMARATE
  39. METHOCARBAMOL. [Concomitant]
     Active Substance: METHOCARBAMOL
  40. TRAMADOL HCL [Concomitant]
     Active Substance: TRAMADOL HYDROCHLORIDE

REACTIONS (1)
  - Laryngitis [Unknown]

NARRATIVE: CASE EVENT DATE: 20160628
